FAERS Safety Report 10530445 (Version 1)
Quarter: 2014Q4

REPORT INFORMATION
  Report Type: Spontaneous
  Country: US (occurrence: None)
  Receive Date: 20141020
  Receipt Date: 20141020
  Transmission Date: 20150528
  Serious: No
  Sender: FDA-Public Use
  Company Number: None

PATIENT
  Age: 47 Year
  Sex: Female
  Weight: 77.11 kg

DRUGS (1)
  1. PROSCAR [Suspect]
     Active Substance: FINASTERIDE
     Indication: BLOOD TESTOSTERONE ABNORMAL
     Dosage: 30 PILLS.
     Route: 048
     Dates: start: 20140811, end: 20141011

REACTIONS (3)
  - Depression [None]
  - Hypertonic bladder [None]
  - Insomnia [None]

NARRATIVE: CASE EVENT DATE: 20140811
